FAERS Safety Report 8242370-2 (Version None)
Quarter: 2012Q1

REPORT INFORMATION
  Report Type: 
  Country: None (occurrence: None)
  Receive Date: 20120329
  Receipt Date: 20120320
  Transmission Date: 20120608
  Serious: Yes (Other)
  Sender: FDA-Public Use
  Company Number: US-BAYER-2012-007570

PATIENT
  Age: 20 Year
  Sex: Female
  Weight: 57.143 kg

DRUGS (1)
  1. MIRENA [Suspect]
     Indication: CONTRACEPTION
     Dosage: 20 MCG/24HR, CONT
     Route: 015
     Dates: start: 20081119, end: 20120314

REACTIONS (4)
  - DEVICE COMPONENT ISSUE [None]
  - DYSPAREUNIA [None]
  - OVARIAN CYST [None]
  - OVARIAN CYST RUPTURED [None]
